FAERS Safety Report 16017767 (Version 1)
Quarter: 2019Q2

REPORT INFORMATION
  Report Type: Spontaneous
  Country: US (occurrence: US)
  Receive Date: 20190228
  Receipt Date: 20190228
  Transmission Date: 20190711
  Serious: Yes (Death)
  Sender: FDA-Public Use
  Company Number: None

PATIENT
  Sex: Female

DRUGS (7)
  1. LISINOP/HCTZ, MAGNESIUM [Concomitant]
  2. LACTULOSE, LEVOXYL [Concomitant]
  3. PREDNISONE, TEMAZEPAM [Concomitant]
  4. XIFAXAN [Suspect]
     Active Substance: RIFAXIMIN
     Indication: IMMUNE THROMBOCYTOPENIC PURPURA
     Route: 048
     Dates: start: 20181011
  5. VITAMIN D NOS [Concomitant]
     Active Substance: VITAMIN D NOS
  6. NYSTATIN, OXYCONTIN [Concomitant]
  7. PROMACTA [Suspect]
     Active Substance: ELTROMBOPAG OLAMINE
     Indication: IMMUNE THROMBOCYTOPENIC PURPURA
     Route: 048
     Dates: start: 20160129

REACTIONS (1)
  - Death [None]
